FAERS Safety Report 14233672 (Version 1)
Quarter: 2017Q4

REPORT INFORMATION
  Report Type: Spontaneous
  Country: US (occurrence: None)
  Receive Date: 20171128
  Receipt Date: 20171128
  Transmission Date: 20180321
  Serious: Yes (Hospitalization)
  Sender: FDA-Public Use
  Company Number: None

PATIENT
  Age: 54 Year
  Sex: Male

DRUGS (32)
  1. SENEXON [Concomitant]
     Active Substance: SENNOSIDES A AND B
  2. TRAZODONE [Concomitant]
     Active Substance: TRAZODONE HYDROCHLORIDE
  3. CLOBETASOL [Concomitant]
     Active Substance: CLOBETASOL
  4. COSENTYX [Suspect]
     Active Substance: SECUKINUMAB
     Indication: PSORIASIS
     Route: 058
     Dates: start: 20171021
  5. LYRICA [Concomitant]
     Active Substance: PREGABALIN
  6. NYSTATIN. [Concomitant]
     Active Substance: NYSTATIN
  7. AMMONIUM LAC [Concomitant]
  8. DULOXETINE. [Concomitant]
     Active Substance: DULOXETINE
  9. LIDOCAINE. [Concomitant]
     Active Substance: LIDOCAINE
  10. FUROSEMIDE. [Concomitant]
     Active Substance: FUROSEMIDE
  11. OXYBUTYNIN. [Concomitant]
     Active Substance: OXYBUTYNIN CHLORIDE
  12. ONDANSETRON [Concomitant]
     Active Substance: ONDANSETRON
  13. NARCAN [Concomitant]
     Active Substance: NALOXONE HYDROCHLORIDE
  14. MORPHINE SUL [Concomitant]
     Active Substance: MORPHINE SULFATE
  15. PANTOPRAZOLE [Concomitant]
     Active Substance: PANTOPRAZOLE
  16. FERROUS SULF [Concomitant]
     Active Substance: FERROUS SULFATE
  17. IRON [Concomitant]
     Active Substance: IRON
  18. MELATONIN [Concomitant]
     Active Substance: MELATONIN
  19. METOPROLOL TART [Concomitant]
     Active Substance: METOPROLOL TARTRATE
  20. LIDOCAINE. [Concomitant]
     Active Substance: LIDOCAINE
  21. SPIRONOLACT [Concomitant]
     Active Substance: SPIRONOLACTONE
  22. VIRTUSSIN [Concomitant]
  23. TRAMADOL. [Concomitant]
     Active Substance: TRAMADOL
  24. BANOPHEN [Concomitant]
     Active Substance: DIPHENHYDRAMINE HYDROCHLORIDE
  25. LACTULOSE. [Concomitant]
     Active Substance: LACTULOSE
  26. METFORMIN [Concomitant]
     Active Substance: METFORMIN HYDROCHLORIDE
  27. NYSTOP [Concomitant]
     Active Substance: NYSTATIN
  28. OXYCODONE [Concomitant]
     Active Substance: OXYCODONE
  29. TAMSULOSIN [Concomitant]
     Active Substance: TAMSULOSIN
  30. ATENOLOL. [Concomitant]
     Active Substance: ATENOLOL
  31. POLYETH GLYC [Concomitant]
     Active Substance: POLYETHYLENE GLYCOLS
  32. XARELTO [Concomitant]
     Active Substance: RIVAROXABAN

REACTIONS (2)
  - Pericardial effusion [None]
  - Viral infection [None]
